FAERS Safety Report 4974992-6 (Version None)
Quarter: 2006Q2

REPORT INFORMATION
  Report Type: 
  Country: None (occurrence: None)
  Receive Date: 20060418
  Receipt Date: 20060113
  Transmission Date: 20061013
  Serious: Yes (Hospitalization)
  Sender: FDA-Public Use
  Company Number: DE-AMGEN-UK164912

PATIENT
  Sex: Female

DRUGS (10)
  1. NEULASTA [Suspect]
     Indication: CHEMOTHERAPY
     Route: 058
     Dates: start: 20060102, end: 20060102
  2. DOCETAXEL [Concomitant]
     Route: 042
     Dates: start: 20051230
  3. DOXORUBICIN HCL [Concomitant]
     Route: 042
     Dates: start: 20051230
  4. CYCLOPHOSPHAMIDE [Concomitant]
     Route: 042
     Dates: start: 20051230
  5. EMEND [Concomitant]
     Route: 048
     Dates: start: 20051230, end: 20060101
  6. UROMITEXAN [Concomitant]
     Route: 048
     Dates: start: 20051230, end: 20051230
  7. DEXAMETHASONE [Concomitant]
     Route: 048
     Dates: start: 20051230, end: 20060101
  8. PANTOZOL [Concomitant]
     Route: 048
     Dates: start: 20051230, end: 20060101
  9. PASPERTIN [Concomitant]
     Route: 048
     Dates: start: 20051230
  10. GRANISETRON [Concomitant]
     Route: 042
     Dates: start: 20051230

REACTIONS (5)
  - BONE PAIN [None]
  - CHEST PAIN [None]
  - LEUKOCYTOSIS [None]
  - MYALGIA [None]
  - PAIN [None]
